FAERS Safety Report 24735962 (Version 3)
Quarter: 2025Q1

REPORT INFORMATION
  Report Type: Spontaneous
  Country: JP (occurrence: JP)
  Receive Date: 20241216
  Receipt Date: 20250109
  Transmission Date: 20250409
  Serious: Yes (Hospitalization, Other)
  Sender: BRISTOL-MYERS SQUIBB COMPANY
  Company Number: JP-BRISTOL-MYERS SQUIBB COMPANY-2024-193981

PATIENT
  Age: 85 Year
  Sex: Male
  Weight: 77.5 kg

DRUGS (2)
  1. ELIQUIS [Suspect]
     Active Substance: APIXABAN
     Indication: Cerebrovascular accident prophylaxis
     Route: 048
  2. ELIQUIS [Suspect]
     Active Substance: APIXABAN
     Dosage: IN THE MORNING
     Route: 048

REACTIONS (4)
  - Embolic stroke [Not Recovered/Not Resolved]
  - Bladder cancer [Unknown]
  - Haemorrhage [Unknown]
  - Off label use [Unknown]
